FAERS Safety Report 22379017 (Version 1)
Quarter: 2023Q2

REPORT INFORMATION
  Report Type: Spontaneous
  Country: US (occurrence: US)
  Receive Date: 20230529
  Receipt Date: 20230529
  Transmission Date: 20230721
  Serious: No
  Sender: FDA-Public Use
  Company Number: US-BEH-2023159153

PATIENT
  Age: 7 Year
  Sex: Male

DRUGS (2)
  1. HIZENTRA [Suspect]
     Active Substance: HUMAN IMMUNOGLOBULIN G
     Dosage: 4 GRAM
     Route: 065
  2. HIZENTRA [Suspect]
     Active Substance: HUMAN IMMUNOGLOBULIN G
     Dosage: 6 GRAM, 2 INFUSIONS 3G EACH
     Route: 065

REACTIONS (4)
  - Infusion site swelling [Unknown]
  - Infusion site erythema [Unknown]
  - Infusion site mass [Unknown]
  - Infusion site ulcer [Unknown]
